FAERS Safety Report 5391406-5 (Version None)
Quarter: 2007Q3

REPORT INFORMATION
  Report Type: 
  Country: None (occurrence: None)
  Receive Date: 20070719
  Receipt Date: 20070712
  Transmission Date: 20080115
  Serious: Yes (Other)
  Sender: FDA-Public Use
  Company Number: PHBS2007BR10117

PATIENT
  Age: 80 Year
  Sex: Female
  Weight: 44 kg

DRUGS (3)
  1. COMTAN [Suspect]
     Indication: PARKINSON'S DISEASE
     Dosage: 200 MG, QD
     Route: 048
     Dates: start: 20070614, end: 20070615
  2. PROLOPA [Concomitant]
     Indication: PARKINSON'S DISEASE
     Dosage: 0.5 DF, Q4H
     Route: 048
  3. SIFROL [Concomitant]
     Dosage: 0.125 MG, BID

REACTIONS (3)
  - HYPOKINESIA [None]
  - MUSCLE RIGIDITY [None]
  - PARALYSIS [None]
